FAERS Safety Report 5575772-3 (Version None)
Quarter: 2007Q4

REPORT INFORMATION
  Report Type: 
  Country: None (occurrence: None)
  Receive Date: 20071221
  Receipt Date: 20071116
  Transmission Date: 20080405
  Serious: Yes (Other)
  Sender: FDA-Public Use
  Company Number: 8025870

PATIENT
  Sex: Male

DRUGS (1)
  1. XOZAL [Suspect]
     Dosage: TRP
     Route: 064
     Dates: start: 20070112, end: 20070810

REACTIONS (4)
  - CAESAREAN SECTION [None]
  - DRUG EXPOSURE DURING PREGNANCY [None]
  - PREGNANCY [None]
  - PREMATURE BABY [None]
